FAERS Safety Report 10447429 (Version 1)
Quarter: 2014Q3

REPORT INFORMATION
  Report Type: Spontaneous
  Country: GB (occurrence: GB)
  Receive Date: 20140911
  Receipt Date: 20140911
  Transmission Date: 20150326
  Serious: Yes (Other)
  Sender: FDA-Public Use
  Company Number: GB-009507513-1409GBR004858

PATIENT
  Age: 38 Year
  Sex: Female

DRUGS (1)
  1. NEXPLANON [Suspect]
     Active Substance: ETONOGESTREL
     Dosage: UNK
     Route: 059

REACTIONS (7)
  - Arthralgia [Not Recovered/Not Resolved]
  - Implant site infection [Recovered/Resolved]
  - Implant site erythema [Recovered/Resolved]
  - Implant site pain [Not Recovered/Not Resolved]
  - Implant site swelling [Recovering/Resolving]
  - Sensory loss [Not Recovered/Not Resolved]
  - Implant site paraesthesia [Recovering/Resolving]

NARRATIVE: CASE EVENT DATE: 20131007
